FAERS Safety Report 5456012-2 (Version None)
Quarter: 2007Q3

REPORT INFORMATION
  Report Type: 
  Country: None (occurrence: None)
  Receive Date: 20070918
  Receipt Date: 20070228
  Transmission Date: 20080115
  Serious: Yes (Other)
  Sender: FDA-Public Use
  Company Number: US-ASTRAZENECA-2006UW23994

PATIENT
  Sex: Female
  Weight: 100 kg

DRUGS (7)
  1. SEROQUEL [Suspect]
     Route: 048
  2. ABILIFY [Suspect]
  3. RISPERDAL [Suspect]
  4. ZYPREXA [Suspect]
  5. HALDOL [Concomitant]
  6. NAVANE [Concomitant]
  7. STELAZINE [Concomitant]

REACTIONS (8)
  - DIABETES MELLITUS [None]
  - DIABETIC COMA [None]
  - DIABETIC KETOACIDOSIS [None]
  - EXTRAPYRAMIDAL DISORDER [None]
  - HYPERGLYCAEMIA [None]
  - NEUROLEPTIC MALIGNANT SYNDROME [None]
  - PANCREATITIS [None]
  - TARDIVE DYSKINESIA [None]
